FAERS Safety Report 23845827 (Version 5)
Quarter: 2025Q3

REPORT INFORMATION
  Report Type: Report from Study
  Country: IN (occurrence: IN)
  Receive Date: 20240512
  Receipt Date: 20250825
  Transmission Date: 20251020
  Serious: Yes (Other)
  Sender: NOVARTIS
  Company Number: IN-002147023-NVSC2022IN295037

PATIENT
  Age: 66 Year
  Sex: Female

DRUGS (3)
  1. TASIGNA [Suspect]
     Active Substance: NILOTINIB
     Indication: Chronic myeloid leukaemia
     Dosage: 400 MG, BID
     Route: 048
     Dates: start: 20210102, end: 20221218
  2. TASIGNA [Suspect]
     Active Substance: NILOTINIB
     Dosage: 400 MG, BID
     Route: 048
     Dates: start: 20221219, end: 20230221
  3. TASIGNA [Suspect]
     Active Substance: NILOTINIB
     Dosage: 400 MG, BID
     Route: 048
     Dates: start: 20230222

REACTIONS (17)
  - Steatohepatitis [Unknown]
  - Aspergillus infection [Unknown]
  - Philadelphia chromosome positive [Unknown]
  - Gastrointestinal disorder [Not Recovered/Not Resolved]
  - Arthralgia [Not Recovered/Not Resolved]
  - Increased liver stiffness [Unknown]
  - White blood cell count decreased [Unknown]
  - Blood pressure abnormal [Unknown]
  - Haemoglobin abnormal [Unknown]
  - White blood cell count abnormal [Unknown]
  - Platelet count abnormal [Unknown]
  - Blood lactate dehydrogenase abnormal [Unknown]
  - Blood creatinine abnormal [Unknown]
  - Blood bilirubin abnormal [Unknown]
  - Bilirubin conjugated abnormal [Unknown]
  - Blood uric acid abnormal [Unknown]
  - Alanine aminotransferase abnormal [Unknown]

NARRATIVE: CASE EVENT DATE: 20221210
